FAERS Safety Report 5298452-0 (Version None)
Quarter: 2007Q2

REPORT INFORMATION
  Report Type: 
  Country: None (occurrence: None)
  Receive Date: 20070409
  Receipt Date: 20070328
  Transmission Date: 20071010
  Serious: Yes (Life-Threatening, Hospitalization)
  Sender: FDA-Public Use
  Company Number: 20073677

PATIENT
  Age: 57 Year
  Sex: Male

DRUGS (2)
  1. LIORESAL [Suspect]
     Indication: MUSCLE SPASTICITY
     Dosage: UNK MCG, DAILY, INTRATHECAL
     Route: 037
  2. AVONEX [Concomitant]

REACTIONS (13)
  - ACUTE RESPIRATORY FAILURE [None]
  - HYPOXIA [None]
  - LETHARGY [None]
  - MULTI-ORGAN FAILURE [None]
  - MUSCLE SPASTICITY [None]
  - NEPHROPATHY [None]
  - PEPTIC ULCER [None]
  - PERITONITIS [None]
  - PLEURAL EFFUSION [None]
  - PNEUMOPERITONEUM [None]
  - RENAL FAILURE ACUTE [None]
  - SEPSIS [None]
  - SEPTIC SHOCK [None]
